FAERS Safety Report 4726838-9 (Version None)
Quarter: 2005Q3

REPORT INFORMATION
  Report Type: 
  Country: None (occurrence: None)
  Receive Date: 20050726
  Receipt Date: 20050713
  Transmission Date: 20060218
  Serious: Yes (Hospitalization)
  Sender: FDA-Public Use
  Company Number: 2005086249

PATIENT
  Age: 73 Year
  Sex: Male

DRUGS (13)
  1. CAMPTOSAR [Suspect]
     Indication: SMALL CELL LUNG CANCER STAGE UNSPECIFIED
     Dosage: 80 MG D, INTRAVENOUS
     Route: 042
     Dates: start: 20030827, end: 20030827
  2. ETOPOSIDE [Suspect]
     Indication: SMALL CELL LUNG CANCER STAGE UNSPECIFIED
     Dosage: 60 MG D INTRA-ARTERIAL
     Route: 013
     Dates: start: 20030104, end: 20030104
  3. ETOPOSIDE [Suspect]
     Indication: SMALL CELL LUNG CANCER STAGE UNSPECIFIED
     Dosage: 60 MG D INTRA-ARTERIAL
     Route: 013
     Dates: start: 20030207, end: 20030207
  4. CISPLATIN [Suspect]
     Indication: SMALL CELL LUNG CANCER STAGE UNSPECIFIED
     Dosage: SEE IMAGE
     Route: 013
     Dates: start: 20030104, end: 20030104
  5. CISPLATIN [Suspect]
     Indication: SMALL CELL LUNG CANCER STAGE UNSPECIFIED
     Dosage: SEE IMAGE
     Route: 013
     Dates: start: 20030207, end: 20030207
  6. CISPLATIN [Suspect]
     Indication: SMALL CELL LUNG CANCER STAGE UNSPECIFIED
     Dosage: SEE IMAGE
     Route: 013
     Dates: start: 20030827, end: 20030827
  7. HYCAMTIN [Concomitant]
  8. MAGNESIUM OXIDE (MAGNESIUM OXIDE) [Concomitant]
  9. DISOPYRAMIDE [Concomitant]
  10. VERAPAMIL HYDROCHLORIDE [Concomitant]
  11. DIGOXIN [Concomitant]
  12. PREDNISOLONE [Concomitant]
  13. GRAN (FILGRASTIM) [Concomitant]

REACTIONS (5)
  - ANAEMIA [None]
  - BLOOD LACTATE DEHYDROGENASE DECREASED [None]
  - DIFFERENTIAL WHITE BLOOD CELL COUNT ABNORMAL [None]
  - LEUKOPENIA [None]
  - LYMPHOCYTE COUNT DECREASED [None]
